FAERS Safety Report 23663384 (Version 1)
Quarter: 2024Q1

REPORT INFORMATION
  Report Type: Spontaneous
  Country: US (occurrence: None)
  Receive Date: 20240321
  Receipt Date: 20240321
  Transmission Date: 20240409
  Serious: Yes (Other)
  Sender: FDA-Public Use
  Company Number: None

PATIENT
  Age: 57 Year
  Sex: Male
  Weight: 105.3 kg

DRUGS (14)
  1. KEYTRUDA [Suspect]
     Active Substance: PEMBROLIZUMAB
     Indication: Tongue neoplasm malignant stage unspecified
     Dosage: OTHER FREQUENCY : EVERY 3 WEEK INFUS;?OTHER ROUTE : IMPLANTED PORT;?
     Route: 050
  2. Venlafazine [Concomitant]
  3. VALIUM [Concomitant]
     Active Substance: DIAZEPAM
  4. LYRICA [Concomitant]
     Active Substance: PREGABALIN
  5. LEVOTHYROXINE [Concomitant]
     Active Substance: LEVOTHYROXINE\LEVOTHYROXINE SODIUM
  6. LOSARTAN [Concomitant]
     Active Substance: LOSARTAN
  7. DEXAMETHASONE [Concomitant]
     Active Substance: DEXAMETHASONE
  8. OMEPRAZOLE [Concomitant]
     Active Substance: OMEPRAZOLE
  9. METFORMIN [Concomitant]
     Active Substance: METFORMIN HYDROCHLORIDE
  10. NOVOLOG [Concomitant]
     Active Substance: INSULIN ASPART
  11. TYROTHRICIN [Concomitant]
     Active Substance: TYROTHRICIN
  12. VITAMIN D [Concomitant]
     Active Substance: VITAMIN D NOS
  13. MINERALS\VITAMINS [Concomitant]
     Active Substance: MINERALS\VITAMINS
  14. VITAMIN B12 [Concomitant]
     Active Substance: CYANOCOBALAMIN

REACTIONS (3)
  - Swelling face [None]
  - Swollen tongue [None]
  - Oesophageal oedema [None]

NARRATIVE: CASE EVENT DATE: 20240319
